FAERS Safety Report 9757197 (Version 5)
Quarter: 2014Q1

REPORT INFORMATION
  Report Type: Report from Study
  Country: CA (occurrence: CA)
  Receive Date: 20131213
  Receipt Date: 20140107
  Transmission Date: 20141002
  Serious: Yes (Hospitalization, Other)
  Sender: FDA-Public Use
  Company Number: CA-ABBVIE-13P-028-1175325-00

PATIENT
  Age: 70 Year
  Sex: Male
  Weight: 97.4 kg

DRUGS (1)
  1. HUMIRA [Suspect]
     Indication: CROHN^S DISEASE
     Route: 058
     Dates: start: 20111109, end: 201311

REACTIONS (6)
  - Acute coronary syndrome [Recovered/Resolved]
  - Gastrointestinal obstruction [Recovered/Resolved]
  - Intestinal operation [Not Recovered/Not Resolved]
  - Dysphonia [Unknown]
  - Malaise [Unknown]
  - Post procedural complication [Unknown]
